FAERS Safety Report 4687060-8 (Version None)
Quarter: 2005Q2

REPORT INFORMATION
  Report Type: 
  Country: None (occurrence: None)
  Receive Date: 20050608
  Receipt Date: 20050525
  Transmission Date: 20051028
  Serious: Yes (Hospitalization)
  Sender: FDA-Public Use
  Company Number: USA050393072

PATIENT
  Age: 58 Year
  Sex: Female

DRUGS (4)
  1. CYMBALTA [Suspect]
     Indication: MAJOR DEPRESSION
     Dates: start: 20041220, end: 20050301
  2. PROVIGIL [Concomitant]
  3. AMBIEN [Concomitant]
  4. CORTISONE [Concomitant]

REACTIONS (1)
  - BLOOD PRESSURE INCREASED [None]
